FAERS Safety Report 8816774 (Version 1)
Quarter: 2012Q4

REPORT INFORMATION
  Report Type: Spontaneous
  Country: US (occurrence: None)
  Receive Date: 20121001
  Receipt Date: 20121001
  Transmission Date: 20130627
  Serious: Yes (Hospitalization)
  Sender: FDA-Public Use
  Company Number: UTC-023140

PATIENT
  Age: 79 Year
  Sex: Female
  Weight: 73.2 kg

DRUGS (3)
  1. TYVASO (6 MICROGRAM, AEROSOL FOR INHALATION) (TREPROSTINIL SODIUM) [Suspect]
     Indication: PRIMARY PULMONARY HYPERTENSION
     Dosage: 12 to 54 mcg (4 in 1D) Inhalation
     Route: 055
     Dates: start: 20110707
  2. TYVASO (6 MICROGRAM, AEROSOL FOR INHALATION) (TREPROSTINIL SODIUM) [Suspect]
     Indication: PULMONARY HYPERTENSION
     Dosage: 12 to 54 mcg (4 in 1D) Inhalation
     Route: 055
     Dates: start: 20110707
  3. ADCIRCA (TADALAFIL) [Concomitant]

REACTIONS (4)
  - Chest pain [None]
  - Dyspnoea [None]
  - Condition aggravated [None]
  - Pulmonary hypertension [None]
